FAERS Safety Report 9719952 (Version 1)
Quarter: 2013Q4

REPORT INFORMATION
  Report Type: Report from Study
  Country: ES (occurrence: ES)
  Receive Date: 20131128
  Receipt Date: 20131128
  Transmission Date: 20140711
  Serious: Yes (Hospitalization, Other)
  Sender: FDA-Public Use
  Company Number: ES-JNJFOC-20131117415

PATIENT
  Age: 78 Year
  Sex: Female

DRUGS (15)
  1. IBUPROFEN [Suspect]
     Indication: OSTEITIS
     Route: 048
     Dates: start: 20130215, end: 20130224
  2. ALDACTONE [Interacting]
     Indication: CARDIAC FAILURE
     Route: 048
     Dates: start: 200708, end: 20130224
  3. CIPROFLOXACIN [Interacting]
     Indication: OSTEITIS
     Route: 048
     Dates: start: 20130215, end: 20130224
  4. FUROSEMIDE [Interacting]
     Indication: CARDIAC FAILURE
     Route: 048
     Dates: start: 200708, end: 20130224
  5. CLINDAMYCIN HCL [Interacting]
     Indication: OSTEITIS
     Route: 048
     Dates: start: 20130215, end: 20130224
  6. VALSARTAN [Interacting]
     Indication: HYPERTENSION
     Route: 048
     Dates: start: 200708, end: 20130224
  7. SIMVASTATIN [Concomitant]
     Indication: PRODUCT USED FOR UNKNOWN INDICATION
     Route: 065
  8. OMEPRAZOLE [Concomitant]
     Indication: PRODUCT USED FOR UNKNOWN INDICATION
     Route: 065
  9. METFORMIN [Concomitant]
     Indication: PRODUCT USED FOR UNKNOWN INDICATION
     Route: 065
  10. GABAPENTIN [Concomitant]
     Indication: PRODUCT USED FOR UNKNOWN INDICATION
     Route: 065
  11. FOSTER [Concomitant]
     Indication: PRODUCT USED FOR UNKNOWN INDICATION
     Route: 065
  12. INSULATARD INSULIN [Concomitant]
     Indication: PRODUCT USED FOR UNKNOWN INDICATION
     Route: 065
  13. ACFOL [Concomitant]
     Indication: PRODUCT USED FOR UNKNOWN INDICATION
     Route: 065
  14. OPTOVIT-E [Concomitant]
     Indication: PRODUCT USED FOR UNKNOWN INDICATION
     Route: 065
  15. ESCITALOPRAM [Concomitant]
     Indication: PRODUCT USED FOR UNKNOWN INDICATION
     Route: 065

REACTIONS (5)
  - Hyperkalaemia [Recovered/Resolved]
  - Depressed level of consciousness [Unknown]
  - Drug interaction [Recovered/Resolved]
  - Renal failure acute [Recovered/Resolved]
  - Decreased appetite [Unknown]
